FAERS Safety Report 8289293-0 (Version None)
Quarter: 2012Q2

REPORT INFORMATION
  Report Type: 
  Country: None (occurrence: None)
  Receive Date: 20120417
  Receipt Date: 20120412
  Transmission Date: 20120825
  Serious: Yes (Other)
  Sender: FDA-Public Use
  Company Number: PHEH2012US007850

PATIENT
  Sex: Female

DRUGS (4)
  1. TWYNSTA [Concomitant]
     Dosage: UNK UKN, UNK
  2. VALTURNA [Concomitant]
     Dosage: UNK UKN, UNK
  3. TEKTURNA [Suspect]
     Dosage: UNK UKN, UNK
  4. METFORMIN HCL [Concomitant]
     Dosage: UNK UKN, UNK

REACTIONS (2)
  - RENAL FAILURE [None]
  - PROTEIN URINE PRESENT [None]
